FAERS Safety Report 10244698 (Version 1)
Quarter: 2014Q1

REPORT INFORMATION
  Report Type: Spontaneous
  Country: US (occurrence: None)
  Receive Date: 20140306
  Receipt Date: 20140306
  Transmission Date: 20141002
  Serious: Yes (Life-Threatening, Hospitalization)
  Sender: FDA-Public Use
  Company Number: 163-21880-13022282

PATIENT
  Age: 82 Year
  Sex: Male

DRUGS (9)
  1. REVLIMID (LENALIDOMIDE) (5 MILLIGRAM, CAPSULES) [Suspect]
     Indication: MYELODYSPLASTIC SYNDROME
     Dosage: 5 MG 10 IN 28 D, PO
     Route: 048
     Dates: start: 20130103
  2. TAMSULOSIN [Concomitant]
  3. PREDNISONE (TABLETS) [Concomitant]
  4. OMEPRAZOLE [Concomitant]
  5. METOPROLOL SUCCINATE [Concomitant]
  6. METAMUCIL (PLANTAGO OVATA FIBRE) (POWDER) [Concomitant]
  7. LOVASTATIN (TABLETS) [Concomitant]
  8. HYDROCODONE-ACTAMINOPHEN (VICODIN) (TABLETS) [Concomitant]
  9. GABAPENTIN (CAPSULES) [Concomitant]

REACTIONS (3)
  - Pneumonia [None]
  - Neutrophil count decreased [None]
  - Condition aggravated [None]
